FAERS Safety Report 9182118 (Version 1)
Quarter: 2013Q1

REPORT INFORMATION
  Report Type: Spontaneous
  Country: BR (occurrence: BR)
  Receive Date: 20130322
  Receipt Date: 20130322
  Transmission Date: 20140127
  Serious: Yes (Other)
  Sender: FDA-Public Use
  Company Number: BR-JNJFOC-20130308678

PATIENT
  Sex: 0

DRUGS (4)
  1. DOXORUBICIN [Suspect]
     Indication: SARCOMA
     Dosage: IN BOLUS ON DAY 1
     Route: 042
  2. IFOSFAMIDE [Suspect]
     Indication: SARCOMA
     Dosage: 9.0 G/M2 PER CYCLE, INFUSED IN 2 HOURS FROM DAY 1 TO DAY 5
     Route: 042
  3. MESNA [Suspect]
     Indication: SARCOMA
     Dosage: HALF OF EQUIVALENT DOSE OF MESNA WAS INFUSED 15 MINUTES PRE-IFOSFAMIDE AND 4 HOURS POST-IFOSFAMIDE
     Route: 042
  4. FILGRASTIM [Suspect]
     Indication: SARCOMA
     Dosage: ADMINISTERED AFTER THE LAST DOSE OF CHEMOTHERAPY FOR 5 DAYS
     Route: 058

REACTIONS (5)
  - Febrile neutropenia [Unknown]
  - Sarcoma [Unknown]
  - Toxicity to various agents [Unknown]
  - Wound complication [Unknown]
  - Off label use [Unknown]
